FAERS Safety Report 8565232-X (Version None)
Quarter: 2012Q3

REPORT INFORMATION
  Report Type: 
  Country: None (occurrence: None)
  Receive Date: 20120803
  Receipt Date: 20120704
  Transmission Date: 20120928
  Serious: Yes (Other)
  Sender: FDA-Public Use
  Company Number: GB-GLAXOSMITHKLINE-B0812492A

PATIENT
  Sex: Male

DRUGS (3)
  1. POTIGA [Suspect]
     Indication: EPILEPSY
     Dosage: 100MG PER DAY
     Route: 048
     Dates: start: 20120422, end: 20120511
  2. VALPROATE SODIUM [Concomitant]
     Indication: EPILEPSY
     Dosage: 600MG TWICE PER DAY
     Route: 048
  3. CLOBAZAM [Concomitant]
     Indication: EPILEPSY
     Dosage: 15MG TWICE PER DAY
     Route: 048

REACTIONS (2)
  - RESPIRATORY TRACT INFECTION [None]
  - URINARY RETENTION [None]
